FAERS Safety Report 16480452 (Version 1)
Quarter: 2019Q2

REPORT INFORMATION
  Report Type: Spontaneous
  Country: US (occurrence: US)
  Receive Date: 20190626
  Receipt Date: 20190626
  Transmission Date: 20190711
  Serious: Yes (Other)
  Sender: FDA-Public Use
  Company Number: US-MYLANLABS-2019M1059348

PATIENT
  Age: 68 Year
  Sex: Female

DRUGS (2)
  1. TRAVOPROST. [Suspect]
     Active Substance: TRAVOPROST
     Indication: EXFOLIATION GLAUCOMA
     Route: 061
  2. TIMOLOL. [Suspect]
     Active Substance: TIMOLOL
     Indication: EXFOLIATION GLAUCOMA
     Route: 061

REACTIONS (2)
  - Toxicity to various agents [Recovered/Resolved]
  - Endocrine ophthalmopathy [Recovered/Resolved]
